FAERS Safety Report 5275908-8 (Version None)
Quarter: 2007Q1

REPORT INFORMATION
  Report Type: 
  Country: None (occurrence: None)
  Receive Date: 20070326
  Receipt Date: 20070321
  Transmission Date: 20070707
  Serious: Yes (Hospitalization)
  Sender: FDA-Public Use
  Company Number: FR-MERCK-0612FRA00062

PATIENT
  Age: 81 Year
  Sex: Female

DRUGS (13)
  1. FOSAMAX [Suspect]
     Indication: OSTEOPOROSIS
     Route: 048
     Dates: start: 20060728, end: 20060919
  2. OMEPRAZOLE [Suspect]
     Route: 048
     Dates: start: 20060728, end: 20060919
  3. POTASSIUM CHLORIDE [Suspect]
     Indication: HYPOKALAEMIA
     Route: 048
     Dates: start: 20060728
  4. DAPSONE [Suspect]
     Indication: PEMPHIGUS
     Route: 048
     Dates: start: 20060804, end: 20060912
  5. DAPSONE [Suspect]
     Route: 048
     Dates: start: 20060914, end: 20060919
  6. PREDNISONE [Suspect]
     Indication: PEMPHIGUS
     Route: 048
     Dates: start: 20060728, end: 20060912
  7. PREDNISONE [Suspect]
     Route: 048
     Dates: start: 20060914
  8. FUROSEMIDE [Concomitant]
     Indication: HYPERTENSION
     Route: 048
  9. DILTIAZEM HYDROCHLORIDE [Concomitant]
     Indication: HYPERTENSION
     Route: 048
  10. DIGOXIN [Concomitant]
     Indication: ATRIAL FIBRILLATION
     Route: 048
     Dates: end: 20060919
  11. ACENOCOUMAROL [Concomitant]
     Indication: PROPHYLAXIS
     Route: 048
  12. AMOXICILLIN [Concomitant]
     Indication: LARYNGITIS
     Route: 065
     Dates: start: 20060914
  13. AMPHOTERICIN B [Concomitant]
     Indication: LARYNGITIS
     Route: 065
     Dates: start: 20060914

REACTIONS (1)
  - DRUG RASH WITH EOSINOPHILIA AND SYSTEMIC SYMPTOMS [None]
